FAERS Safety Report 25616290 (Version 3)
Quarter: 2025Q4

REPORT INFORMATION
  Report Type: Spontaneous
  Country: EU (occurrence: EU)
  Receive Date: 20250729
  Receipt Date: 20251007
  Transmission Date: 20260118
  Serious: Yes (Other)
  Sender: RANBAXY
  Company Number: EU-ALMIRALL-DE-2025-2686

PATIENT
  Age: 75 Year
  Sex: Female

DRUGS (2)
  1. TILDRAKIZUMAB [Suspect]
     Active Substance: TILDRAKIZUMAB
     Indication: Psoriasis
     Dosage: 100 MILLIGRAM
     Route: 058
     Dates: start: 20240424, end: 20250416
  2. LEVOTHYROXINE [Concomitant]
     Active Substance: LEVOTHYROXINE
     Indication: Hypothyroidism
     Dosage: 100 MICROGRAM, DAILY IN THE MORNING (1-0-0)
     Route: 065
     Dates: start: 1989

REACTIONS (6)
  - Monoclonal gammopathy [Not Recovered/Not Resolved]
  - Glomerular filtration rate decreased [Unknown]
  - Gamma-glutamyltransferase increased [Unknown]
  - Mean cell volume increased [Unknown]
  - Mean cell haemoglobin increased [Unknown]
  - Serum ferritin increased [Unknown]

NARRATIVE: CASE EVENT DATE: 20250417
